FAERS Safety Report 6831866-3 (Version None)
Quarter: 2010Q3

REPORT INFORMATION
  Report Type: 
  Country: None (occurrence: None)
  Receive Date: 20100712
  Receipt Date: 20100702
  Transmission Date: 20110219
  Serious: Yes (Hospitalization, Other)
  Sender: FDA-Public Use
  Company Number: DE-EISAI INC.-E3810-03175-SPO-DE

PATIENT
  Age: 69 Year
  Sex: Female
  Weight: 90 kg

DRUGS (8)
  1. PARIET (RABEPRAZOLE) [Suspect]
     Indication: REFLUX OESOPHAGITIS
     Route: 048
     Dates: start: 20080616, end: 20080701
  2. PARIET (RABEPRAZOLE) [Suspect]
     Route: 048
     Dates: start: 20090321, end: 20090328
  3. SORTIS [Concomitant]
     Dosage: UNKNOWN
  4. CARMEN [Concomitant]
     Dosage: UNKNOWN
  5. NEBIVOLOL HCL [Concomitant]
     Dosage: UNKNOWN
  6. CALCIMAGON-D3 [Concomitant]
     Dosage: UNKNOWN
  7. VIGANTOL [Concomitant]
     Dosage: UNKNOWN
  8. LUCOL [Concomitant]
     Dosage: UNKNOWN

REACTIONS (9)
  - BLOOD AMYLASE INCREASED [None]
  - BLOOD CREATININE ABNORMAL [None]
  - BLOOD PRESSURE FLUCTUATION [None]
  - CHILLS [None]
  - DECREASED APPETITE [None]
  - FATIGUE [None]
  - LIVER FUNCTION TEST ABNORMAL [None]
  - RENAL FAILURE [None]
  - WEIGHT DECREASED [None]
